FAERS Safety Report 24284500 (Version 1)
Quarter: 2024Q3

REPORT INFORMATION
  Report Type: Spontaneous
  Country: PL (occurrence: PL)
  Receive Date: 20240905
  Receipt Date: 20240905
  Transmission Date: 20241016
  Serious: Yes (Hospitalization, Other)
  Sender: ABBVIE
  Company Number: PL-ABBVIE-5904720

PATIENT
  Age: 72 Year
  Sex: Male

DRUGS (10)
  1. VENETOCLAX [Suspect]
     Active Substance: VENETOCLAX
     Indication: Acute myeloid leukaemia
     Route: 048
  2. VENETOCLAX [Suspect]
     Active Substance: VENETOCLAX
     Indication: Acute myeloid leukaemia
     Route: 048
  3. VENETOCLAX [Suspect]
     Active Substance: VENETOCLAX
     Indication: Acute myeloid leukaemia
     Route: 048
  4. VORICONAZOLE [Concomitant]
     Active Substance: VORICONAZOLE
     Indication: Gastrointestinal fungal infection
  5. SODIUM CHLORIDE [Concomitant]
     Active Substance: SODIUM CHLORIDE
     Indication: Tumour lysis syndrome
     Dosage: 500 MILLILITER
  6. LEVOFLOXACIN [Concomitant]
     Active Substance: LEVOFLOXACIN
     Indication: Antibiotic prophylaxis
  7. GRANULOCYTE COLONY-STIMULATING FACTOR NOS [Concomitant]
     Active Substance: GRANULOCYTE COLONY-STIMULATING FACTOR NOS
     Indication: Agranulocytosis
  8. AZACITIDINE [Concomitant]
     Active Substance: AZACITIDINE
     Indication: Acute myeloid leukaemia
     Dosage: 75 MG/M2
  9. FUROSEMIDE KABI [Concomitant]
     Indication: Prophylaxis
     Dosage: 2 - 3 AMPOULES /DAY
     Route: 042
  10. ALLOPURINOL [Concomitant]
     Active Substance: ALLOPURINOL
     Indication: Product used for unknown indication
     Dosage: 600 MILLIGRAM
     Route: 048

REACTIONS (14)
  - Tumour lysis syndrome [Recovered/Resolved]
  - Pneumonia [Unknown]
  - Anaemia [Unknown]
  - COVID-19 [Unknown]
  - Blood creatinine increased [Recovered/Resolved]
  - Neutropenia [Unknown]
  - Blood calcium decreased [Recovered/Resolved]
  - Blood uric acid increased [Recovered/Resolved]
  - Bone marrow failure [Unknown]
  - Agranulocytosis [Unknown]
  - Platelet count decreased [Unknown]
  - Anal abscess [Unknown]
  - Erythroid dysplasia [Unknown]
  - Gastrointestinal fungal infection [Unknown]
